FAERS Safety Report 6061530-2 (Version None)
Quarter: 2009Q1

REPORT INFORMATION
  Report Type: 
  Country: None (occurrence: None)
  Receive Date: 20090202
  Receipt Date: 20090120
  Transmission Date: 20090719
  Serious: Yes (Other)
  Sender: FDA-Public Use
  Company Number: JP-ROCHE-610625

PATIENT
  Sex: Male

DRUGS (1)
  1. XELODA [Suspect]
     Indication: RECTAL CANCER
     Dosage: DRUG REPORTED AS XELODA 300.
     Route: 048
     Dates: start: 20080828, end: 20081223

REACTIONS (1)
  - LEUKOENCEPHALOPATHY [None]
